FAERS Safety Report 5483579-0 (Version None)
Quarter: 2007Q4

REPORT INFORMATION
  Report Type: 
  Country: None (occurrence: None)
  Receive Date: 20071009
  Receipt Date: 20071009
  Transmission Date: 20080405
  Serious: Yes (Hospitalization)
  Sender: FDA-Public Use
  Company Number: None

PATIENT
  Sex: Female

DRUGS (1)
  1. FLEBOGAMMA [Suspect]
     Indication: CHRONIC INFLAMMATORY DEMYELINATING POLYRADICULONEUROPATHY
     Dosage: 30 GRAMS Q10WK IV
     Route: 042
     Dates: start: 20070211, end: 20070212

REACTIONS (6)
  - BLOOD PRESSURE DECREASED [None]
  - DYSPHAGIA [None]
  - PRURITUS [None]
  - SWOLLEN TONGUE [None]
  - TONGUE OEDEMA [None]
  - URTICARIA [None]
